FAERS Safety Report 13239988 (Version 1)
Quarter: 2017Q1

REPORT INFORMATION
  Report Type: Spontaneous
  Country: US (occurrence: US)
  Receive Date: 20170216
  Receipt Date: 20170216
  Transmission Date: 20170428
  Serious: No
  Sender: FDA-Public Use
  Company Number: US-PFIZER INC-2017066222

PATIENT
  Age: 46 Year
  Sex: Female
  Weight: 81.65 kg

DRUGS (7)
  1. TELMISARTAN. [Suspect]
     Active Substance: TELMISARTAN
  2. TREXIMET [Suspect]
     Active Substance: NAPROXEN SODIUM\SUMATRIPTAN SUCCINATE
  3. NORCO [Suspect]
     Active Substance: ACETAMINOPHEN\HYDROCODONE BITARTRATE
  4. TORADOL [Suspect]
     Active Substance: KETOROLAC TROMETHAMINE
  5. NEURONTIN [Suspect]
     Active Substance: GABAPENTIN
  6. DECADRON [Suspect]
     Active Substance: DEXAMETHASONE
  7. METOPROLOL TARTRATE. [Suspect]
     Active Substance: METOPROLOL TARTRATE
     Dosage: UNK

REACTIONS (1)
  - Feeling abnormal [Recovered/Resolved]
